FAERS Safety Report 5898360-8 (Version None)
Quarter: 2008Q3

REPORT INFORMATION
  Report Type: 
  Country: None (occurrence: None)
  Receive Date: 20080925
  Receipt Date: 20071001
  Transmission Date: 20090109
  Serious: No
  Sender: FDA-Public Use
  Company Number: A0685345A

PATIENT
  Age: 50 Year
  Sex: Female

DRUGS (3)
  1. WELLBUTRIN XL [Suspect]
     Indication: DEPRESSION
     Dosage: 150MG PER DAY
     Route: 048
     Dates: start: 20070919
  2. PROZAC [Concomitant]
  3. POLICOSANOL [Concomitant]

REACTIONS (4)
  - BINGE EATING [None]
  - CRYING [None]
  - DEPRESSION [None]
  - EMOTIONAL DISORDER [None]
